FAERS Safety Report 4348300-8 (Version None)
Quarter: 2004Q2

REPORT INFORMATION
  Report Type: 
  Country: None (occurrence: None)
  Receive Date: 20040422
  Receipt Date: 20040412
  Transmission Date: 20050107
  Serious: Yes (Other)
  Sender: FDA-Public Use
  Company Number: 2004025322

PATIENT
  Sex: Male

DRUGS (1)
  1. LIPITOR [Suspect]
     Indication: ILL-DEFINED DISORDER
     Dosage: 40 MG (DAILY), ORAL
     Route: 048
     Dates: start: 20030101

REACTIONS (4)
  - ASTHENIA [None]
  - BEDRIDDEN [None]
  - JAUNDICE CHOLESTATIC [None]
  - PANCREATIC CARCINOMA [None]
